FAERS Safety Report 20572165 (Version 1)
Quarter: 2022Q1

REPORT INFORMATION
  Report Type: Spontaneous
  Country: US (occurrence: US)
  Receive Date: 20220309
  Receipt Date: 20220309
  Transmission Date: 20220423
  Serious: Yes (Hospitalization, Other)
  Sender: FDA-Public Use
  Company Number: US-UNITED THERAPEUTICS-UNT-2022-003985

PATIENT
  Sex: Female
  Weight: 70.295 kg

DRUGS (3)
  1. REMODULIN [Suspect]
     Active Substance: TREPROSTINIL
     Indication: Pulmonary arterial hypertension
     Dosage: UNK, CONTINUING
     Route: 058
     Dates: start: 20170331
  2. REMODULIN [Suspect]
     Active Substance: TREPROSTINIL
     Dosage: 0.0833 ?G/KG, CONTINUING
     Route: 058
     Dates: end: 20220216
  3. EPOPROSTENOL [Suspect]
     Active Substance: EPOPROSTENOL
     Indication: Pulmonary arterial hypertension
     Dosage: UNK
     Route: 042
     Dates: start: 20220216

REACTIONS (2)
  - Cardiac failure [Unknown]
  - Cough [Unknown]
